FAERS Safety Report 10958800 (Version 1)
Quarter: 2015Q1

REPORT INFORMATION
  Report Type: Spontaneous
  Country: US (occurrence: US)
  Receive Date: 20150326
  Receipt Date: 20150326
  Transmission Date: 20150721
  Serious: Yes (Hospitalization, Other)
  Sender: FDA-Public Use
  Company Number: US-MYLANLABS-2015M1009846

PATIENT

DRUGS (9)
  1. ETOPOSIDE. [Suspect]
     Active Substance: ETOPOSIDE
     Indication: OFF LABEL USE
     Dosage: 250 MG/M2
     Route: 065
  2. CARBOPLATIN. [Suspect]
     Active Substance: CARBOPLATIN
     Indication: CHOROID PLEXUS CARCINOMA
     Dosage: 550 MG/M2 FOR ONE DOSE ON DAY 3
     Route: 065
  3. MESNA. [Suspect]
     Active Substance: MESNA
     Indication: OFF LABEL USE
  4. THIOTEPA. [Suspect]
     Active Substance: THIOTEPA
     Indication: CHEMOTHERAPY
     Dosage: 300 MG/M2 DAILY X 3 DAYS
     Route: 065
  5. MESNA. [Suspect]
     Active Substance: MESNA
     Indication: CHOROID PLEXUS CARCINOMA
     Dosage: 600 MG/M2 AT 3, 5, 9, 12, 15, 20, 24H AFTER IFOSFAMIDE FOR 2 DAYS
     Route: 065
  6. CARBOPLATIN. [Suspect]
     Active Substance: CARBOPLATIN
     Indication: OFF LABEL USE
     Dosage: 500 MG/M2
     Route: 065
  7. IFOSFAMIDE. [Suspect]
     Active Substance: IFOSFAMIDE
     Indication: CHOROID PLEXUS CARCINOMA
     Dosage: 3000 MG/M2 DAILY X2 DAYS
     Route: 065
  8. IFOSFAMIDE. [Suspect]
     Active Substance: IFOSFAMIDE
     Indication: OFF LABEL USE
  9. ETOPOSIDE. [Suspect]
     Active Substance: ETOPOSIDE
     Indication: CHOROID PLEXUS CARCINOMA
     Dosage: 150 MG/M2 DAILY X2 DAYS
     Route: 065

REACTIONS (4)
  - Febrile neutropenia [Recovered/Resolved]
  - Cytopenia [Recovered/Resolved]
  - Mucosal inflammation [Unknown]
  - Nausea [Recovered/Resolved]
